FAERS Safety Report 6067315-5 (Version None)
Quarter: 2009Q1

REPORT INFORMATION
  Report Type: 
  Country: None (occurrence: None)
  Receive Date: 20090205
  Receipt Date: 20090127
  Transmission Date: 20090719
  Serious: Yes (Hospitalization)
  Sender: FDA-Public Use
  Company Number: JP-PFIZER INC-2009160936

PATIENT
  Sex: Male
  Weight: 59.6 kg

DRUGS (3)
  1. IRINOTECAN HCL [Suspect]
     Indication: COLON CANCER
     Dosage: 250 MG, 1 IN 2 WK
     Route: 042
     Dates: start: 20081028, end: 20081126
  2. CETUXIMAB [Suspect]
     Indication: COLON CANCER
     Dosage: 660 MG, ONCE
     Route: 042
     Dates: start: 20081028, end: 20081028
  3. CETUXIMAB [Suspect]
     Dosage: 400 MG  1 IN 1 WK
     Route: 042
     Dates: start: 20081104, end: 20081126

REACTIONS (1)
  - PYOMYOSITIS [None]
